FAERS Safety Report 8918555 (Version 4)
Quarter: 2013Q1

REPORT INFORMATION
  Report Type: Spontaneous
  Country: SE (occurrence: SE)
  Receive Date: 20121120
  Receipt Date: 20130205
  Transmission Date: 20140127
  Serious: Yes (Hospitalization)
  Sender: FDA-Public Use
  Company Number: SE-OTSUKA-EU-2012-10188

PATIENT
  Age: 79 Year
  Sex: Female

DRUGS (2)
  1. PLETAL [Suspect]
     Indication: INTERMITTENT CLAUDICATION
     Dosage: 100 MG MILLIGRAM(S), BID
     Route: 048
     Dates: start: 201205, end: 201206
  2. PLETAL [Suspect]
     Dosage: 75 MG MILLIGRAM(S), BID
     Route: 048
     Dates: start: 201206, end: 20120914

REACTIONS (4)
  - Cardiac failure [Unknown]
  - Hyperglycaemia [Not Recovered/Not Resolved]
  - Type 2 diabetes mellitus [Unknown]
  - Incorrect dose administered [Unknown]
